FAERS Safety Report 24235932 (Version 1)
Quarter: 2024Q3

REPORT INFORMATION
  Report Type: Spontaneous
  Country: US (occurrence: US)
  Receive Date: 20240822
  Receipt Date: 20240822
  Transmission Date: 20241016
  Serious: Yes (Disabling, Other)
  Sender: NOVO NORDISK
  Company Number: US-NOVOPROD-1270070

PATIENT
  Age: 55 Year
  Sex: Female

DRUGS (1)
  1. WEGOVY [Suspect]
     Active Substance: SEMAGLUTIDE
     Indication: Product used for unknown indication
     Dosage: UNK
     Route: 058

REACTIONS (6)
  - Surgery [Unknown]
  - Seizure [Unknown]
  - Cerebrovascular accident [Unknown]
  - Disability [Unknown]
  - Procedural pain [Unknown]
  - Blood cholesterol increased [Unknown]
